FAERS Safety Report 7979040-1 (Version None)
Quarter: 2011Q4

REPORT INFORMATION
  Report Type: 
  Country: None (occurrence: None)
  Receive Date: 20111205
  Receipt Date: 20111122
  Transmission Date: 20120403
  Serious: Yes (Hospitalization, Other)
  Sender: FDA-Public Use
  Company Number: 2011MA016756

PATIENT
  Sex: Female
  Weight: 74.8435 kg

DRUGS (17)
  1. SIMVASTATIN [Concomitant]
  2. CEPHALEXIN [Concomitant]
  3. AMIODARONE HCL [Concomitant]
  4. ACETAMINOPHEN [Concomitant]
  5. COREG [Concomitant]
  6. METOPROLOL TARTRATE [Concomitant]
  7. LORATADINE [Concomitant]
  8. FAMOTIDINE [Concomitant]
  9. CARTIA XT [Concomitant]
  10. AMLODIPINE [Concomitant]
  11. DIGOXIN [Suspect]
     Indication: CARDIAC FAILURE CONGESTIVE
     Dosage: 0.125 MG;QD;PO
     Route: 048
     Dates: start: 20050101, end: 20081217
  12. LISINOPRIL [Concomitant]
  13. HYDROCODONE BITARTRATE [Concomitant]
  14. ATIVAN [Concomitant]
  15. TAZTIA XT [Concomitant]
  16. ALTACE [Concomitant]
  17. POTASSIUM CHLORIDE [Concomitant]

REACTIONS (34)
  - EAR PAIN [None]
  - WHEEZING [None]
  - TREATMENT NONCOMPLIANCE [None]
  - ECONOMIC PROBLEM [None]
  - CONGESTIVE CARDIOMYOPATHY [None]
  - HYPERTENSION [None]
  - CONDITION AGGRAVATED [None]
  - MULTIPLE INJURIES [None]
  - HYPOAESTHESIA [None]
  - HYSTERECTOMY [None]
  - DEVICE MALFUNCTION [None]
  - SUPRAVENTRICULAR TACHYCARDIA [None]
  - TACHYARRHYTHMIA [None]
  - DECREASED APPETITE [None]
  - RENAL FAILURE [None]
  - BUNDLE BRANCH BLOCK LEFT [None]
  - TOXICITY TO VARIOUS AGENTS [None]
  - ANXIETY [None]
  - EJECTION FRACTION DECREASED [None]
  - MASTICATION DISORDER [None]
  - CONDUCTION DISORDER [None]
  - DILATATION VENTRICULAR [None]
  - DYSPNOEA [None]
  - FATIGUE [None]
  - HYPOKALAEMIA [None]
  - DIASTOLIC DYSFUNCTION [None]
  - HEART RATE IRREGULAR [None]
  - DIZZINESS [None]
  - DYSPHAGIA [None]
  - CARDIAC FAILURE CONGESTIVE [None]
  - PANIC ATTACK [None]
  - ASTHENIA [None]
  - QRS AXIS ABNORMAL [None]
  - INCORRECT DOSE ADMINISTERED [None]
